FAERS Safety Report 11644242 (Version 1)
Quarter: 2015Q4

REPORT INFORMATION
  Report Type: Spontaneous
  Country: US (occurrence: None)
  Receive Date: 20151019
  Receipt Date: 20151019
  Transmission Date: 20160304
  Serious: Yes (Hospitalization, Disabling)
  Sender: FDA-Public Use
  Company Number: None

PATIENT
  Age: 29 Year
  Sex: Male
  Weight: 68.04 kg

DRUGS (4)
  1. RAINBOW LIGHT BRAND MULTIVITAMIN [Concomitant]
  2. ZOLOFT [Concomitant]
     Active Substance: SERTRALINE HYDROCHLORIDE
  3. FINASTERIDE. [Suspect]
     Active Substance: FINASTERIDE
     Indication: ALOPECIA
     Dosage: 0.25 (1/4) PILL
     Route: 048
     Dates: start: 20150718, end: 20151009
  4. REMERON [Concomitant]
     Active Substance: MIRTAZAPINE

REACTIONS (3)
  - Ejaculation disorder [None]
  - Suicidal ideation [None]
  - Depression [None]

NARRATIVE: CASE EVENT DATE: 20150911
